FAERS Safety Report 11061324 (Version 1)
Quarter: 2015Q2

REPORT INFORMATION
  Report Type: Spontaneous
  Country: US (occurrence: None)
  Receive Date: 20150423
  Receipt Date: 20150423
  Transmission Date: 20150821
  Serious: Yes (Other)
  Sender: FDA-Public Use
  Company Number: None

PATIENT
  Age: 13 Year
  Sex: Female
  Weight: 81.19 kg

DRUGS (4)
  1. CARNITOR [Suspect]
     Active Substance: LEVOCARNITINE
     Indication: LIPIDS INCREASED
     Dosage: 1 TABLET  THREE TIMES DAILY TAKEN BY MOUTH
     Route: 048
     Dates: start: 20150416, end: 20150421
  2. PEPTO-BISMOL [Concomitant]
     Active Substance: BISMUTH SUBSALICYLATE\CALCIUM CARBONATE
  3. BENADRYL [Concomitant]
     Active Substance: DIPHENHYDRAMINE HYDROCHLORIDE
  4. ACETAMINOPHEN. [Concomitant]
     Active Substance: ACETAMINOPHEN

REACTIONS (5)
  - Gastric disorder [None]
  - Swelling face [None]
  - Hypersensitivity [None]
  - Paraesthesia [None]
  - Headache [None]

NARRATIVE: CASE EVENT DATE: 20150421
